FAERS Safety Report 20562532 (Version 2)
Quarter: 2022Q1

REPORT INFORMATION
  Report Type: Spontaneous
  Country: DE (occurrence: DE)
  Receive Date: 20220307
  Receipt Date: 20220316
  Transmission Date: 20220423
  Serious: Yes (Hospitalization, Disabling, Other)
  Sender: FDA-Public Use
  Company Number: DE-VER-202200003

PATIENT
  Age: 88 Year
  Sex: Male

DRUGS (1)
  1. TRIPTORELIN PAMOATE [Suspect]
     Active Substance: TRIPTORELIN PAMOATE
     Indication: Prostate cancer
     Route: 030

REACTIONS (7)
  - Fall [Unknown]
  - Hand fracture [Unknown]
  - Fall [Unknown]
  - Fall [Unknown]
  - Femoral neck fracture [Unknown]
  - Femoral neck fracture [Unknown]
  - Osteoporosis [Unknown]
